FAERS Safety Report 6171845-5 (Version None)
Quarter: 2009Q2

REPORT INFORMATION
  Report Type: 
  Country: None (occurrence: None)
  Receive Date: 20090429
  Receipt Date: 20090420
  Transmission Date: 20091009
  Serious: Yes (Other)
  Sender: FDA-Public Use
  Company Number: US-JNJFOC-20090400668

PATIENT
  Sex: Female
  Weight: 68.04 kg

DRUGS (2)
  1. REMICADE [Suspect]
     Route: 042
  2. REMICADE [Suspect]
     Indication: RHEUMATOID ARTHRITIS
     Dosage: PATIENT HAD 2 INFUSIONS
     Route: 042

REACTIONS (2)
  - BLOOD POTASSIUM DECREASED [None]
  - SUPRAVENTRICULAR TACHYCARDIA [None]
